FAERS Safety Report 4685207-0 (Version None)
Quarter: 2005Q2

REPORT INFORMATION
  Report Type: 
  Country: None (occurrence: None)
  Receive Date: 20050608
  Receipt Date: 20050527
  Transmission Date: 20051028
  Serious: Yes (Hospitalization)
  Sender: FDA-Public Use
  Company Number: FR-BOEHRINGER INGELHEIM PHARMACEUTICALS, INC.-2005-DE-02099GL

PATIENT
  Age: 53 Year
  Sex: Male

DRUGS (3)
  1. TELMISARTAN [Suspect]
     Indication: HYPERTENSION
     Route: 048
     Dates: start: 20030101
  2. METFORMIN HCL [Concomitant]
     Dates: start: 20030101
  3. GLIMEPIRIDE [Concomitant]
     Dates: start: 20030101

REACTIONS (2)
  - TENDONITIS [None]
  - URINE URIC ACID INCREASED [None]
